FAERS Safety Report 4406569-5 (Version None)
Quarter: 2004Q3

REPORT INFORMATION
  Report Type: 
  Country: None (occurrence: None)
  Receive Date: 20040723
  Receipt Date: 20040722
  Transmission Date: 20050211
  Serious: Yes (Hospitalization)
  Sender: FDA-Public Use
  Company Number: DEPFP-C-20040014

PATIENT
  Age: 62 Year
  Sex: Male

DRUGS (8)
  1. NAVELBINE [Suspect]
     Indication: NON-SMALL CELL LUNG CANCER
     Dosage: 46MG CYCLIC
     Route: 042
     Dates: start: 20040427
  2. CISPLATIN [Concomitant]
  3. GEMCITABINE [Concomitant]
  4. PANTOPRAZOLE [Concomitant]
  5. RAMIPRIL [Concomitant]
  6. ASPIRIN [Concomitant]
  7. SOTALOL HCL [Concomitant]
  8. KEVATRIL [Concomitant]

REACTIONS (3)
  - ALVEOLITIS ALLERGIC [None]
  - DYSPNOEA EXACERBATED [None]
  - PNEUMONITIS [None]
